FAERS Safety Report 5930813-6 (Version None)
Quarter: 2008Q4

REPORT INFORMATION
  Report Type: 
  Country: None (occurrence: None)
  Receive Date: 20081002
  Receipt Date: 20080409
  Transmission Date: 20090506
  Serious: Yes (Other)
  Sender: FDA-Public Use
  Company Number: 2008-0016044

PATIENT
  Age: 41 Year
  Sex: Male

DRUGS (2)
  1. TRUVADA [Suspect]
     Indication: HIV INFECTION
     Dates: start: 20080212, end: 20080407
  2. KALETRA [Suspect]
     Indication: HIV INFECTION
     Dates: start: 20080212, end: 20080407

REACTIONS (2)
  - HEPATITIS [None]
  - IMMUNE RECONSTITUTION SYNDROME [None]
